FAERS Safety Report 25587347 (Version 3)
Quarter: 2025Q3

REPORT INFORMATION
  Report Type: Spontaneous
  Country: EU (occurrence: EU)
  Receive Date: 20250721
  Receipt Date: 20250911
  Transmission Date: 20251020
  Serious: Yes (Death, Life-Threatening, Hospitalization, Other)
  Sender: PFIZER
  Company Number: EU-Accord-491090

PATIENT
  Age: 65 Year
  Sex: Male
  Weight: 58 kg

DRUGS (12)
  1. DOCETAXEL [Suspect]
     Active Substance: DOCETAXEL
     Indication: Head and neck cancer
     Dates: start: 20250225
  2. DOCETAXEL [Suspect]
     Active Substance: DOCETAXEL
  3. DOCETAXEL [Suspect]
     Active Substance: DOCETAXEL
  4. DOCETAXEL [Suspect]
     Active Substance: DOCETAXEL
     Dates: start: 20250318
  5. CISPLATIN [Suspect]
     Active Substance: CISPLATIN
     Indication: Head and neck cancer
     Route: 042
     Dates: start: 20250225
  6. CISPLATIN [Suspect]
     Active Substance: CISPLATIN
     Route: 042
  7. CISPLATIN [Suspect]
     Active Substance: CISPLATIN
     Route: 042
  8. CISPLATIN [Suspect]
     Active Substance: CISPLATIN
     Route: 042
     Dates: start: 20250318
  9. CETUXIMAB [Suspect]
     Active Substance: CETUXIMAB
     Indication: Head and neck cancer
     Dates: start: 20250225
  10. CETUXIMAB [Suspect]
     Active Substance: CETUXIMAB
  11. CETUXIMAB [Suspect]
     Active Substance: CETUXIMAB
  12. CETUXIMAB [Suspect]
     Active Substance: CETUXIMAB
     Dates: start: 20250318

REACTIONS (6)
  - Febrile neutropenia [Fatal]
  - Septic shock [Fatal]
  - Intestinal ischaemia [Fatal]
  - Neutropenia [Not Recovered/Not Resolved]
  - Diarrhoea [Not Recovered/Not Resolved]
  - Vomiting [Not Recovered/Not Resolved]

NARRATIVE: CASE EVENT DATE: 20250301
